FAERS Safety Report 14467073 (Version 1)
Quarter: 2018Q1

REPORT INFORMATION
  Report Type: Other
  Country: US (occurrence: US)
  Receive Date: 20180131
  Receipt Date: 20180131
  Transmission Date: 20180509
  Serious: No
  Sender: FDA-Public Use
  Company Number: US-ACORDA-ACO_137595_2017

PATIENT
  Age: 58 Year
  Sex: Male

DRUGS (6)
  1. CYMBALTA [Concomitant]
     Active Substance: DULOXETINE HYDROCHLORIDE
     Indication: PRODUCT USED FOR UNKNOWN INDICATION
     Dosage: UNKNOWN
     Route: 065
  2. TIZANIDINE. [Suspect]
     Active Substance: TIZANIDINE
     Indication: MUSCLE SPASTICITY
     Dosage: 16 MG, HS
     Route: 048
     Dates: start: 201605
  3. REBIF [Concomitant]
     Active Substance: INTERFERON BETA-1A
     Indication: MULTIPLE SCLEROSIS
     Dosage: 44 MCG, 3X/WK
     Route: 058
  4. MODAFINIL. [Concomitant]
     Active Substance: MODAFINIL
     Indication: FATIGUE
     Dosage: 100 MG, QOD PRN
     Route: 048
  5. AMPYRA [Suspect]
     Active Substance: DALFAMPRIDINE
     Indication: MULTIPLE SCLEROSIS
     Dosage: 10 MG, BID
     Route: 048
     Dates: start: 201701, end: 201704
  6. NORTRIPTYLINE HCL [Concomitant]
     Active Substance: NORTRIPTYLINE HYDROCHLORIDE
     Indication: PAIN MANAGEMENT
     Dosage: 100 MG, HS
     Route: 048
     Dates: start: 2003

REACTIONS (2)
  - Drug ineffective [Not Recovered/Not Resolved]
  - Dyschromatopsia [Recovered/Resolved]

NARRATIVE: CASE EVENT DATE: 201702
